FAERS Safety Report 9129836 (Version 2)
Quarter: 2013Q2

REPORT INFORMATION
  Report Type: Spontaneous
  Country: US (occurrence: US)
  Receive Date: 20130228
  Receipt Date: 20130624
  Transmission Date: 20140414
  Serious: Yes (Hospitalization)
  Sender: FDA-Public Use
  Company Number: US-B.I. PHARMACEUTICALS,INC./RIDGEFIELD-2013-BI-04952BP

PATIENT
  Age: 63 Year
  Sex: Female
  Weight: 131.54 kg

DRUGS (4)
  1. PRADAXA [Suspect]
     Indication: ATRIAL FIBRILLATION
     Dosage: 300 MG
     Dates: start: 20110228, end: 20110320
  2. COREG [Concomitant]
     Dosage: 25 MG
  3. LISINOPRIL [Concomitant]
     Dosage: 20 MG
  4. ASPIRIN [Concomitant]

REACTIONS (1)
  - Lower gastrointestinal haemorrhage [Recovered/Resolved]
